FAERS Safety Report 6544267-2 (Version None)
Quarter: 2010Q1

REPORT INFORMATION
  Report Type: 
  Country: None (occurrence: None)
  Receive Date: 20100120
  Receipt Date: 20100111
  Transmission Date: 20100710
  Serious: Yes (Other)
  Sender: FDA-Public Use
  Company Number: DE-ELI_LILLY_AND_COMPANY-DE200910002599

PATIENT
  Sex: Male
  Weight: 84 kg

DRUGS (4)
  1. ZYPREXA [Suspect]
     Indication: SCHIZOAFFECTIVE DISORDER
     Dosage: 15 MG, DAILY (1/D)
     Route: 048
  2. ZYPREXA [Suspect]
     Dosage: 10 MG, DAILY (1/D)
     Route: 048
  3. VALPROATE SODIUM [Concomitant]
     Indication: SCHIZOAFFECTIVE DISORDER
     Dosage: 2500 MG, UNKNOWN
     Route: 048
  4. LITHIUM [Concomitant]
     Indication: SCHIZOAFFECTIVE DISORDER
     Dosage: 450 MG, 2/D
     Route: 048

REACTIONS (6)
  - AMYOTROPHY [None]
  - ASTHENIA [None]
  - ATROPHY [None]
  - COGNITIVE DISORDER [None]
  - GAIT DISTURBANCE [None]
  - TREMOR [None]
